FAERS Safety Report 14433375 (Version 1)
Quarter: 2018Q1

REPORT INFORMATION
  Report Type: Spontaneous
  Country: US (occurrence: US)
  Receive Date: 20180124
  Receipt Date: 20180124
  Transmission Date: 20180509
  Serious: No
  Sender: FDA-Public Use
  Company Number: US-PCCINC-T201700374

PATIENT

DRUGS (9)
  1. BACLOFEN. [Concomitant]
     Active Substance: BACLOFEN
     Route: 048
  2. CARVEDILOL. [Concomitant]
     Active Substance: CARVEDILOL
  3. VITAMIN E [Concomitant]
     Active Substance: .ALPHA.-TOCOPHEROL
  4. RESVERATROL [Concomitant]
     Active Substance: DIETARY SUPPLEMENT\RESVERATROL
  5. BOTOX COSMETIC [Concomitant]
     Active Substance: ONABOTULINUMTOXINA
  6. COQ10 [Concomitant]
     Active Substance: UBIDECARENONE
  7. GABLOFEN [Suspect]
     Active Substance: BACLOFEN
     Dosage: 443 UG/DAY
     Route: 037
  8. CYMBALTA [Concomitant]
     Active Substance: DULOXETINE HYDROCHLORIDE
  9. GABLOFEN [Suspect]
     Active Substance: BACLOFEN
     Indication: MUSCLE SPASMS
     Dosage: 676 ?G, QD
     Route: 037

REACTIONS (5)
  - Device issue [Unknown]
  - Pruritus [Unknown]
  - Ear discomfort [Unknown]
  - Muscle spasticity [Unknown]
  - Somnolence [Unknown]
